FAERS Safety Report 7314214-4 (Version None)
Quarter: 2011Q1

REPORT INFORMATION
  Report Type: 
  Country: None (occurrence: None)
  Receive Date: 20110225
  Receipt Date: 20100610
  Transmission Date: 20110831
  Serious: Yes (Other)
  Sender: FDA-Public Use
  Company Number: US-MYLANLABS-2010S1010344

PATIENT
  Age: 29 Year
  Sex: Female

DRUGS (2)
  1. SOTRET [Suspect]
     Dates: start: 20080101, end: 20080101
  2. AMNESTEEM [Suspect]
     Dates: start: 20080101, end: 20080101

REACTIONS (3)
  - EPISTAXIS [None]
  - COLITIS ULCERATIVE [None]
  - DRY MOUTH [None]
